FAERS Safety Report 23251484 (Version 1)
Quarter: 2023Q4

REPORT INFORMATION
  Report Type: Spontaneous
  Country: US (occurrence: US)
  Receive Date: 20231201
  Receipt Date: 20231201
  Transmission Date: 20240109
  Serious: Yes (Other)
  Sender: FDA-Public Use
  Company Number: US-MYLANLABS-2023M1126794

PATIENT
  Age: 23 Year
  Sex: Male
  Weight: 291.6 kg

DRUGS (9)
  1. TOPIRAMATE [Interacting]
     Active Substance: TOPIRAMATE
     Indication: Obesity
     Dosage: 75 MILLIGRAM
     Route: 065
  2. TOPIRAMATE [Interacting]
     Active Substance: TOPIRAMATE
     Dosage: 100 MILLIGRAM, QD
     Route: 065
  3. METFORMIN [Interacting]
     Active Substance: METFORMIN HYDROCHLORIDE
     Indication: Obesity
     Dosage: 500 MILLIGRAM, QD
     Route: 065
  4. METFORMIN [Interacting]
     Active Substance: METFORMIN HYDROCHLORIDE
     Dosage: 1000 MILLIGRAM
     Route: 065
  5. PHENTERMINE [Interacting]
     Active Substance: PHENTERMINE
     Indication: Obesity
     Dosage: 15 MILLIGRAM
     Route: 065
  6. PHENTERMINE [Interacting]
     Active Substance: PHENTERMINE
     Dosage: 18.75 MILLIGRAM
     Route: 065
  7. SEMAGLUTIDE [Interacting]
     Active Substance: SEMAGLUTIDE
     Indication: Obesity
     Dosage: 0.5 MILLIGRAM, QW
     Route: 065
  8. BUPROPION [Concomitant]
     Active Substance: BUPROPION
     Indication: Depression
     Dosage: 150 MILLIGRAM, QD
     Route: 065
  9. BUPROPION [Concomitant]
     Active Substance: BUPROPION
     Dosage: 300 MILLIGRAM, QD
     Route: 065

REACTIONS (3)
  - Drug ineffective [Unknown]
  - Drug interaction [Unknown]
  - Off label use [Unknown]
